FAERS Safety Report 7718828-9 (Version None)
Quarter: 2011Q3

REPORT INFORMATION
  Report Type: 
  Country: None (occurrence: None)
  Receive Date: 20110830
  Receipt Date: 20110818
  Transmission Date: 20111222
  Serious: Yes (Hospitalization)
  Sender: FDA-Public Use
  Company Number: JP-ASTRAZENECA-2011SE51329

PATIENT
  Age: 28863 Day
  Sex: Female

DRUGS (10)
  1. SULFAMETHOXAZOLE [Concomitant]
     Indication: PNEUMOCYSTIS JIROVECI PNEUMONIA
     Route: 048
     Dates: start: 20101101
  2. LASIX [Concomitant]
     Indication: HYPERTENSION
     Route: 048
     Dates: start: 20101101
  3. ADALAT [Concomitant]
     Indication: HYPERTENSION
     Route: 048
     Dates: start: 20101101
  4. MEROPENEM [Suspect]
     Indication: FEBRILE NEUTROPENIA
     Route: 042
     Dates: start: 20110712, end: 20110719
  5. ADECOL [Concomitant]
     Indication: HYPERTENSION
     Route: 048
     Dates: start: 20101101
  6. IRRADIATED PLATELET CONCENTRATE, LEUKOCYTES REDUCED [Concomitant]
     Dates: start: 20110718, end: 20110718
  7. SULFAMETHOXAZOLE [Concomitant]
     Indication: PROPHYLAXIS
     Route: 048
     Dates: start: 20101101
  8. ITRACONAZOLE [Concomitant]
     Indication: ORAL CANDIDIASIS
     Route: 048
  9. VANCOMYCIN HYCHLORIDE [Concomitant]
     Indication: SEPSIS
     Dates: start: 20110712, end: 20110720
  10. IRRADIATED RED CELLS CONCENTRATES-LEUKOCYTES REDUCED [Concomitant]
     Dates: start: 20110715, end: 20110715

REACTIONS (1)
  - ATAXIA [None]
